FAERS Safety Report 21088018 (Version 1)
Quarter: 2022Q3

REPORT INFORMATION
  Report Type: Spontaneous
  Country: CN (occurrence: CN)
  Receive Date: 20220715
  Receipt Date: 20220715
  Transmission Date: 20221027
  Serious: Yes (Other)
  Sender: FDA-Public Use
  Company Number: None

PATIENT
  Age: 37 Year
  Sex: Female
  Weight: 55 kg

DRUGS (8)
  1. CYCLOPHOSPHAMIDE [Suspect]
     Active Substance: CYCLOPHOSPHAMIDE
     Indication: Breast cancer female
     Dosage: UNK, QD FIRST AND SECOND CHEMOTHERAPY; CYCLOPHOSPHAMIDE FOR INJECTION + NS
     Route: 042
  2. CYCLOPHOSPHAMIDE [Suspect]
     Active Substance: CYCLOPHOSPHAMIDE
     Dosage: 950 MG, QD THIRD CHEMOTHERAPY; CYCLOPHOSPHAMIDE FOR INJECTION (ENDOXAN CTX) (950 MG) + NS (50ML)
     Route: 042
     Dates: start: 20220509, end: 20220509
  3. SODIUM CHLORIDE [Suspect]
     Active Substance: SODIUM CHLORIDE
     Indication: Medication dilution
     Dosage: FIRST AND SECOND CHEMOTHERAPY; CYCLOPHOSPHAMIDE FOR INJECTION + NS
     Route: 042
  4. SODIUM CHLORIDE [Suspect]
     Active Substance: SODIUM CHLORIDE
     Dosage: THIRD CHEMOTHERAPY; CYCLOPHOSPHAMIDE FOR INJECTION (ENDOXAN CTX) (950 MG) + NS (50ML)
     Route: 042
     Dates: start: 20220509, end: 20220509
  5. SODIUM CHLORIDE [Suspect]
     Active Substance: SODIUM CHLORIDE
     Dosage: FIRST AND SECOND  CHEMOTHERAPY;DOCETAXEL INJECTION+ NS
     Route: 041
  6. SODIUM CHLORIDE [Suspect]
     Active Substance: SODIUM CHLORIDE
     Dosage: THIRD CHEMOTHERAPY;DOCETAXEL INJECTION (TAXOTERE) (120 MG) + NS (250ML)
     Route: 041
     Dates: start: 20220509, end: 20220509
  7. TAXOTERE [Suspect]
     Active Substance: DOCETAXEL
     Indication: Breast cancer female
     Dosage: UNK, QD FIRST AND SECOND  CHEMOTHERAPY;DOCETAXEL INJECTION+ NS
     Route: 041
  8. TAXOTERE [Suspect]
     Active Substance: DOCETAXEL
     Dosage: 120 MG, QD THIRD CHEMOTHERAPY;DOCETAXEL INJECTION (TAXOTERE) (120 MG) + NS (250ML)
     Route: 041
     Dates: start: 20220509, end: 20220509

REACTIONS (2)
  - White blood cell count decreased [Recovered/Resolved]
  - Agranulocytosis [Recovered/Resolved]

NARRATIVE: CASE EVENT DATE: 20220519
